FAERS Safety Report 4319518-5 (Version None)
Quarter: 2004Q1

REPORT INFORMATION
  Report Type: 
  Country: None (occurrence: None)
  Receive Date: 20040316
  Receipt Date: 20040303
  Transmission Date: 20041129
  Serious: Yes (Hospitalization, Other)
  Sender: FDA-Public Use
  Company Number: USA031255044

PATIENT
  Age: 65 Year
  Sex: Female
  Weight: 60 kg

DRUGS (5)
  1. EVISTA [Suspect]
     Dosage: 60 MG/ 1 DAY
     Dates: start: 20020220, end: 20031218
  2. CARDIZEM [Concomitant]
  3. AAS (ACETYLSALICYLIC ACID) [Concomitant]
  4. CALCIUM [Concomitant]
  5. VITAMIN D [Concomitant]

REACTIONS (5)
  - FALL [None]
  - PHLEBITIS SUPERFICIAL [None]
  - PNEUMOTHORAX [None]
  - PULMONARY EMBOLISM [None]
  - RIB FRACTURE [None]
